FAERS Safety Report 7717898-1 (Version None)
Quarter: 2011Q3

REPORT INFORMATION
  Report Type: 
  Country: None (occurrence: None)
  Receive Date: 20110830
  Receipt Date: 20110817
  Transmission Date: 20111222
  Serious: Yes (Hospitalization, Other)
  Sender: FDA-Public Use
  Company Number: BR-PFIZER INC-2011199509

PATIENT
  Age: 68 Year
  Sex: Female

DRUGS (2)
  1. ATACAND [Suspect]
     Indication: HYPERTENSION
     Dosage: 16 MG, 1X/DAY
     Route: 048
     Dates: start: 20090101, end: 20100401
  2. PROPRANOLOL HCL [Suspect]
     Dosage: OD
     Route: 048
     Dates: start: 20100101

REACTIONS (4)
  - PULSE PRESSURE DECREASED [None]
  - LABYRINTHITIS [None]
  - ACUTE MYOCARDIAL INFARCTION [None]
  - CARDIAC PACEMAKER INSERTION [None]
